FAERS Safety Report 9055467 (Version 1)
Quarter: 2013Q1

REPORT INFORMATION
  Report Type: Spontaneous
  Country: RO (occurrence: RO)
  Receive Date: 20130209
  Receipt Date: 20130209
  Transmission Date: 20140127
  Serious: Yes (Hospitalization, Other)
  Sender: FDA-Public Use
  Company Number: RO-AMGEN-ROUSP2013009013

PATIENT
  Age: 56 Year
  Sex: Male
  Weight: 55 kg

DRUGS (6)
  1. XGEVA [Suspect]
     Indication: PRODUCT USED FOR UNKNOWN INDICATION
     Dosage: 120 MG, Q4WK
     Route: 058
     Dates: start: 20121213, end: 20121213
  2. ALIMTA [Concomitant]
     Indication: LUNG NEOPLASM MALIGNANT
     Dosage: 850 MG, Q4WK
     Dates: start: 20121215, end: 20121215
  3. PALONOSETRON [Concomitant]
     Indication: VOMITING
     Dosage: UNK
     Route: 042
     Dates: start: 20121215, end: 20121215
  4. SEVREDOL [Concomitant]
     Indication: PAIN
     Dosage: 20 MG, BID
     Route: 048
     Dates: start: 20121114
  5. OXYCODONE [Concomitant]
     Indication: PAIN
     Dosage: 80 MG, BID
     Route: 048
     Dates: start: 20121214
  6. RANITIDINE [Concomitant]

REACTIONS (4)
  - Blood count abnormal [Unknown]
  - Diarrhoea [Recovered/Resolved]
  - Erythema [Recovered/Resolved]
  - Decreased appetite [Unknown]
